FAERS Safety Report 14621927 (Version 1)
Quarter: 2018Q1

REPORT INFORMATION
  Report Type: Spontaneous
  Country: ES (occurrence: ES)
  Receive Date: 20180310
  Receipt Date: 20180310
  Transmission Date: 20180509
  Serious: Yes (Other)
  Sender: FDA-Public Use
  Company Number: ES-AUROBINDO-AUR-APL-2018-013427

PATIENT
  Age: 75 Year
  Sex: Male

DRUGS (2)
  1. AMOXICILINA                        /00249602/ [Suspect]
     Active Substance: AMOXICILLIN
     Indication: PNEUMONIA
     Dosage: 500 MILLIGRAM
     Route: 048
     Dates: start: 20171201
  2. AMOXICILLIN+CLAVULANIC ACID [Suspect]
     Active Substance: AMOXICILLIN\CLAVULANIC ACID
     Indication: PNEUMONIA
     Dosage: 875 MILLIGRAM
     Route: 048

REACTIONS (3)
  - Drug ineffective [Unknown]
  - Wrong drug [Unknown]
  - Pneumonia [Unknown]
